FAERS Safety Report 9832784 (Version 2)
Quarter: 2014Q1

REPORT INFORMATION
  Report Type: Spontaneous
  Country: US (occurrence: US)
  Receive Date: 20140121
  Receipt Date: 20140130
  Transmission Date: 20141002
  Serious: Yes (Hospitalization)
  Sender: FDA-Public Use
  Company Number: US-GLAXOSMITHKLINE-A1057338A

PATIENT
  Age: 44 Year
  Sex: Female

DRUGS (3)
  1. VENTOLIN HFA [Suspect]
     Indication: ASTHMA
     Dosage: 90MCG UNKNOWN
     Route: 055
     Dates: start: 19860101
  2. SYMBICORT [Concomitant]
  3. DALIRESP [Concomitant]

REACTIONS (9)
  - Transfusion [Recovered/Resolved]
  - Uterine dilation and curettage [Recovered/Resolved]
  - Menorrhagia [Recovered/Resolved]
  - Menstrual disorder [Recovered/Resolved]
  - Anaemia [Recovered/Resolved]
  - Menorrhagia [Recovered/Resolved]
  - Fatigue [Not Recovered/Not Resolved]
  - Gait disturbance [Recovered/Resolved]
  - Dizziness [Recovered/Resolved]
